FAERS Safety Report 16942449 (Version 2)
Quarter: 2020Q4

REPORT INFORMATION
  Report Type: Report from Study
  Country: US (occurrence: US)
  Receive Date: 20191021
  Receipt Date: 20201211
  Transmission Date: 20210113
  Serious: Yes (Hospitalization)
  Sender: FDA-Public Use
  Company Number: US-SA-2019SA283645

PATIENT

DRUGS (2)
  1. DUPILUMAB [Suspect]
     Active Substance: DUPILUMAB
     Indication: SEBORRHOEIC DERMATITIS
     Dosage: 600 MG, 1X
     Route: 058
     Dates: start: 20190122, end: 20190122
  2. DUPILUMAB [Suspect]
     Active Substance: DUPILUMAB
     Indication: ECZEMA
     Dosage: 300 MG, QOW
     Route: 058
     Dates: start: 201902

REACTIONS (5)
  - Musculoskeletal chest pain [Unknown]
  - Dry eye [Unknown]
  - Chest pain [Unknown]
  - Product use in unapproved indication [Unknown]
  - Muscle strain [Unknown]

NARRATIVE: CASE EVENT DATE: 20190122
